FAERS Safety Report 8180095-2 (Version None)
Quarter: 2012Q1

REPORT INFORMATION
  Report Type: 
  Country: None (occurrence: None)
  Receive Date: 20120302
  Receipt Date: 20120302
  Transmission Date: 20120608
  Serious: Yes (Other)
  Sender: FDA-Public Use
  Company Number: None

PATIENT
  Sex: Female

DRUGS (2)
  1. TYKERB [Concomitant]
     Dosage: 4
     Route: 048
     Dates: start: 20120222, end: 20120301
  2. XELODA [Suspect]
     Dosage: 2
     Route: 048
     Dates: start: 20120222, end: 20120301

REACTIONS (2)
  - HYPOTENSION [None]
  - VISUAL IMPAIRMENT [None]
